FAERS Safety Report 8258433 (Version 4)
Quarter: 2014Q2

REPORT INFORMATION
  Report Type: Spontaneous
  Country: US (occurrence: US)
  Receive Date: 20111122
  Receipt Date: 20140529
  Transmission Date: 20141212
  Serious: Yes (Life-Threatening, Disabling, Congenital Anomaly, Other)
  Sender: FDA-Public Use
  Company Number: US-PFIZER INC-2011282009

PATIENT
  Sex: Male

DRUGS (4)
  1. ZOLOFT [Suspect]
     Indication: DEPRESSION
     Dosage: 25 MG, DAILY
     Route: 064
     Dates: start: 1986, end: 1998
  2. ZOLOFT [Suspect]
     Indication: ANXIETY
     Dosage: 20-50 MG, DAILY
     Route: 064
  3. ZOLOFT [Suspect]
     Indication: MENTAL DISORDER
  4. PRENATAL VITAMINS [Concomitant]
     Dosage: UNK
     Route: 064

REACTIONS (4)
  - Maternal exposure timing unspecified [Unknown]
  - Spina bifida [Unknown]
  - Neural tube defect [Unknown]
  - Congenital hydrocephalus [Unknown]
